FAERS Safety Report 6870810-X (Version None)
Quarter: 2010Q3

REPORT INFORMATION
  Report Type: 
  Country: None (occurrence: None)
  Receive Date: 20100723
  Receipt Date: 20090920
  Transmission Date: 20110219
  Serious: No
  Sender: FDA-Public Use
  Company Number: US-PFIZER INC-2008075165

PATIENT
  Sex: Male
  Weight: 75.283 kg

DRUGS (5)
  1. CHANTIX [Suspect]
     Indication: SMOKING CESSATION THERAPY
     Dosage: 0.5 MG, DAILY
     Route: 048
     Dates: start: 20080101, end: 20080101
  2. ADVAIR DISKUS 100/50 [Concomitant]
     Indication: ASTHMA
  3. COMBIVENT [Concomitant]
     Indication: ASTHMA
  4. PREDNISONE TAB [Concomitant]
  5. SPIRIVA [Concomitant]
     Dosage: UNK

REACTIONS (3)
  - ABDOMINAL DISCOMFORT [None]
  - DYSPEPSIA [None]
  - NIGHTMARE [None]
